FAERS Safety Report 15570564 (Version 23)
Quarter: 2021Q3

REPORT INFORMATION
  Report Type: Other
  Country: GB (occurrence: GB)
  Receive Date: 20181031
  Receipt Date: 20210730
  Transmission Date: 20211014
  Serious: Yes (Hospitalization, Other)
  Sender: FDA-Public Use
  Company Number: GB-ROCHE-2184774

PATIENT
  Age: 55 Year
  Sex: Female

DRUGS (63)
  1. DENOSUMAB [Suspect]
     Active Substance: DENOSUMAB
     Route: 058
     Dates: start: 20180118
  2. CLINDAMYCIN. [Concomitant]
     Active Substance: CLINDAMYCIN
     Indication: STAPHYLOCOCCAL INFECTION
     Route: 042
     Dates: start: 20190611, end: 20190621
  3. DIAZEPAM. [Concomitant]
     Active Substance: DIAZEPAM
     Indication: BACK PAIN
     Route: 048
     Dates: start: 20180105
  4. FUROSEMIDE. [Concomitant]
     Active Substance: FUROSEMIDE
     Route: 048
     Dates: start: 20191117
  5. LEVOTHYROXINE. [Concomitant]
     Active Substance: LEVOTHYROXINE
     Indication: HYPOTHYROIDISM
     Route: 048
     Dates: start: 20200311
  6. PIPERACILLIN AND TAZOBACTAM [Concomitant]
     Active Substance: PIPERACILLIN SODIUM\TAZOBACTAM SODIUM
  7. GABAPENTIN. [Concomitant]
     Active Substance: GABAPENTIN
     Dosage: ONGOING
     Route: 048
     Dates: start: 20151231
  8. TRASTUZUMAB EMTANSINE [Suspect]
     Active Substance: ADO-TRASTUZUMAB EMTANSINE
     Indication: HER2 POSITIVE BREAST CANCER
     Route: 042
     Dates: start: 20180118, end: 20201117
  9. LETROZOLE. [Suspect]
     Active Substance: LETROZOLE
     Indication: HER2 POSITIVE BREAST CANCER
     Dosage: DATE OF MOST RECENT DOSE: 27/APR/2017
     Route: 048
     Dates: start: 20150707, end: 20170427
  10. DENOSUMAB [Suspect]
     Active Substance: DENOSUMAB
     Indication: METASTASES TO BONE
     Route: 058
     Dates: start: 20170604, end: 20170613
  11. CLARITHROMYCIN. [Concomitant]
     Active Substance: CLARITHROMYCIN
     Indication: PYREXIA
     Route: 048
     Dates: start: 20190415
  12. DERMOL [Concomitant]
     Active Substance: BENZALKONIUM CHLORIDE\CHLORHEXIDINE HYDROCHLORIDE\ISOPROPYL MYRISTATE\PARAFFIN
     Route: 061
  13. DIAZEPAM. [Concomitant]
     Active Substance: DIAZEPAM
     Indication: MUSCULOSKELETAL STIFFNESS
  14. FUROSEMIDE. [Concomitant]
     Active Substance: FUROSEMIDE
     Route: 048
     Dates: start: 20191113, end: 20191116
  15. FUROSEMIDE. [Concomitant]
     Active Substance: FUROSEMIDE
     Route: 048
     Dates: start: 20151112, end: 20151118
  16. LANSOPRAZOLE. [Concomitant]
     Active Substance: LANSOPRAZOLE
     Route: 048
  17. METRONIDAZOLE. [Concomitant]
     Active Substance: METRONIDAZOLE
     Indication: PYREXIA
     Route: 048
     Dates: start: 20180915, end: 20180921
  18. MORPHINE SULFATE. [Concomitant]
     Active Substance: MORPHINE SULFATE
     Route: 048
     Dates: start: 201504, end: 20160516
  19. ACYCLOVIR. [Concomitant]
     Active Substance: ACYCLOVIR
     Indication: HERPES ZOSTER
     Route: 048
     Dates: start: 20160727, end: 20160807
  20. AMOXICILLIN. [Concomitant]
     Active Substance: AMOXICILLIN
     Indication: LOWER RESPIRATORY TRACT INFECTION
     Route: 048
     Dates: start: 20170701, end: 20170706
  21. LISINOPRIL. [Concomitant]
     Active Substance: LISINOPRIL
     Indication: EJECTION FRACTION DECREASED
     Dosage: ONGOING
     Route: 048
     Dates: start: 20161110
  22. METRONIDAZOLE. [Concomitant]
     Active Substance: METRONIDAZOLE
     Indication: OSTEOMYELITIS
     Route: 048
     Dates: start: 20170701, end: 20170708
  23. METRONIDAZOLE. [Concomitant]
     Active Substance: METRONIDAZOLE
     Indication: CELLULITIS
  24. MORPHINE SULFATE. [Concomitant]
     Active Substance: MORPHINE SULFATE
     Route: 048
     Dates: start: 20171224
  25. TINZAPARIN [Concomitant]
     Active Substance: TINZAPARIN
     Indication: DEEP VEIN THROMBOSIS
     Route: 058
     Dates: start: 20200624, end: 20200624
  26. VITAMIN D3 [Concomitant]
     Active Substance: CHOLECALCIFEROL
     Indication: BONE DISORDER
     Dosage: ONGOING
     Route: 048
     Dates: start: 20150827
  27. ZOMORPH [Concomitant]
     Active Substance: MORPHINE SULFATE
     Indication: METASTATIC NEOPLASM
  28. BLOOD TRANSFUSION [Concomitant]
     Active Substance: HUMAN RED BLOOD CELL
     Dosage: 3 UNITS
     Route: 042
     Dates: start: 20200501, end: 20200501
  29. BLOOD TRANSFUSION [Concomitant]
     Active Substance: HUMAN RED BLOOD CELL
     Dosage: 2 UNITS
     Route: 042
     Dates: start: 20191112, end: 20191112
  30. EXEMESTANE. [Suspect]
     Active Substance: EXEMESTANE
     Indication: HER2 POSITIVE BREAST CANCER
     Dosage: DATE OF MOST RECENT DOSE: 10/JAN/2018
     Route: 048
     Dates: start: 20170428, end: 20180110
  31. FUROSEMIDE. [Concomitant]
     Active Substance: FUROSEMIDE
     Route: 042
     Dates: start: 20200626
  32. INHIXA [Concomitant]
     Active Substance: ENOXAPARIN SODIUM
     Indication: THROMBOSIS PROPHYLAXIS
     Route: 058
     Dates: start: 20190610, end: 20190623
  33. LOPERAMIDE [Concomitant]
     Active Substance: LOPERAMIDE
     Indication: DIARRHOEA
     Dates: start: 201804, end: 2019
  34. BLOOD TRANSFUSION [Concomitant]
     Active Substance: HUMAN RED BLOOD CELL
     Dosage: 2 UNITS
     Route: 042
     Dates: start: 20190611, end: 20190611
  35. BLOOD TRANSFUSION [Concomitant]
     Active Substance: HUMAN RED BLOOD CELL
     Dosage: 3 UNITS
     Route: 042
     Dates: start: 20200613, end: 20200613
  36. AMOXICILLIN. [Concomitant]
     Active Substance: AMOXICILLIN
     Route: 048
     Dates: start: 20180701, end: 20180711
  37. FUROSEMIDE. [Concomitant]
     Active Substance: FUROSEMIDE
     Route: 042
     Dates: start: 20200623, end: 20200626
  38. NAPROXEN. [Concomitant]
     Active Substance: NAPROXEN
     Dosage: ONGOING
     Route: 048
  39. TINZAPARIN [Concomitant]
     Active Substance: TINZAPARIN
     Route: 058
     Dates: start: 20190928
  40. BLOOD TRANSFUSION [Concomitant]
     Active Substance: HUMAN RED BLOOD CELL
     Dosage: 2 UNITS
     Route: 042
     Dates: start: 20200718, end: 20200718
  41. CLARITHROMYCIN. [Concomitant]
     Active Substance: CLARITHROMYCIN
     Route: 042
     Dates: start: 20190611, end: 20190611
  42. FUROSEMIDE. [Concomitant]
     Active Substance: FUROSEMIDE
     Indication: OEDEMA
     Route: 042
     Dates: start: 20200622, end: 20200623
  43. MORPHINE SULFATE. [Concomitant]
     Active Substance: MORPHINE SULFATE
     Indication: BACK PAIN
     Route: 048
     Dates: start: 201504
  44. MORPHINE SULFATE. [Concomitant]
     Active Substance: MORPHINE SULFATE
     Route: 048
     Dates: start: 20150516, end: 201611
  45. ZOMORPH [Concomitant]
     Active Substance: MORPHINE SULFATE
     Indication: PAIN
     Route: 048
     Dates: start: 201611
  46. LANSOPRAZOLE. [Concomitant]
     Active Substance: LANSOPRAZOLE
     Route: 048
     Dates: start: 2001
  47. ACYCLOVIR. [Concomitant]
     Active Substance: ACYCLOVIR
     Route: 061
     Dates: start: 20161213
  48. TRASTUZUMAB. [Suspect]
     Active Substance: TRASTUZUMAB
     Indication: HER2 POSITIVE BREAST CANCER
     Dosage: DATE OF MOST RECENT DOSE: 22/DEC/2017
     Route: 058
     Dates: start: 20150716, end: 20171222
  49. CLARITHROMYCIN. [Concomitant]
     Active Substance: CLARITHROMYCIN
     Indication: LOWER RESPIRATORY TRACT INFECTION
     Route: 048
     Dates: start: 20180701, end: 20180711
  50. CLARITHROMYCIN. [Concomitant]
     Active Substance: CLARITHROMYCIN
     Route: 048
     Dates: start: 20180701, end: 20180711
  51. FERROUS SULFATE. [Concomitant]
     Active Substance: FERROUS SULFATE
     Indication: ANAEMIA
     Dosage: ONGOING
     Route: 048
     Dates: start: 20200804
  52. CODEINE [Concomitant]
     Active Substance: CODEINE
     Route: 048
     Dates: start: 201507
  53. CITALOPRAM [Concomitant]
     Active Substance: CITALOPRAM HYDROBROMIDE
     Route: 048
     Dates: start: 2005
  54. CYCLIZINE [Concomitant]
     Active Substance: CYCLIZINE
     Route: 048
     Dates: start: 201507
  55. GABAPENTIN. [Concomitant]
     Active Substance: GABAPENTIN
     Dosage: ONGOING
     Route: 048
  56. HYOSCINE BUTYLBROMIDE [Concomitant]
     Active Substance: BUTYLSCOPOLAMINE BROMIDE
     Indication: NAUSEA
     Dosage: ONGOING
     Route: 048
     Dates: start: 20181222
  57. MAGNESIUM ASPARTATE [Concomitant]
     Active Substance: MAGNESIUM ASPARTATE
     Indication: HYPOMAGNESAEMIA
     Dosage: ONGOING
     Route: 048
     Dates: start: 20191111
  58. PARACETAMOL [Concomitant]
     Active Substance: ACETAMINOPHEN
     Dosage: ONGOING
     Route: 048
     Dates: start: 201504
  59. PEPTAC [CALCIUM CARBONATE;SODIUM ALGINATE;SODIUM BICARBONATE] [Concomitant]
     Route: 048
  60. PROMETHAZINE HYDROCHLORIDE. [Concomitant]
     Active Substance: PROMETHAZINE HYDROCHLORIDE
     Route: 048
  61. GABAPENTIN. [Concomitant]
     Active Substance: GABAPENTIN
     Dosage: ONGOING
     Route: 048
  62. BLOOD TRANSFUSION [Concomitant]
     Active Substance: HUMAN RED BLOOD CELL
     Indication: ANAEMIA
     Dosage: 2 UNITS
     Route: 042
     Dates: start: 20181022, end: 20181022
  63. BLOOD TRANSFUSION [Concomitant]
     Active Substance: HUMAN RED BLOOD CELL
     Dosage: 2 UNITS
     Route: 042
     Dates: start: 20160317, end: 20160317

REACTIONS (12)
  - Haemoptysis [Recovered/Resolved]
  - Candida infection [Recovered/Resolved]
  - Diarrhoea [Recovered/Resolved]
  - Sepsis [Recovered/Resolved]
  - Klebsiella infection [Recovered/Resolved]
  - Lower respiratory tract infection [Recovered/Resolved]
  - Pyrexia [Not Recovered/Not Resolved]
  - Pneumonia [Recovered/Resolved]
  - Escherichia infection [Recovered/Resolved]
  - Constipation [Recovered/Resolved]
  - Lower respiratory tract infection [Recovered/Resolved]
  - Cellulitis [Recovered/Resolved]

NARRATIVE: CASE EVENT DATE: 20170112
